FAERS Safety Report 10647657 (Version 2)
Quarter: 2015Q1

REPORT INFORMATION
  Report Type: Report from Study
  Country: AU (occurrence: AU)
  Receive Date: 20141211
  Receipt Date: 20150312
  Transmission Date: 20150720
  Serious: Yes (Other)
  Sender: FDA-Public Use
  Company Number: AU-ROCHE-1507208

PATIENT
  Age: 63 Year
  Sex: Male

DRUGS (2)
  1. WARFARIN [Concomitant]
     Active Substance: WARFARIN
     Dosage: STARTED APPROXIMATELY IN 2011
     Route: 048
  2. ACTEMRA [Suspect]
     Active Substance: TOCILIZUMAB
     Indication: RHEUMATOID ARTHRITIS
     Route: 042
     Dates: start: 20140528

REACTIONS (3)
  - Polycythaemia vera [Unknown]
  - Thrombocytopenia [Unknown]
  - International normalised ratio fluctuation [Unknown]

NARRATIVE: CASE EVENT DATE: 201409
